FAERS Safety Report 5925966-X (Version None)
Quarter: 2008Q4

REPORT INFORMATION
  Report Type: 
  Country: None (occurrence: None)
  Receive Date: 20081021
  Receipt Date: 20081009
  Transmission Date: 20090506
  Serious: Yes (Life-Threatening)
  Sender: FDA-Public Use
  Company Number: CL-PFIZER INC-2008085922

PATIENT

DRUGS (1)
  1. LYRICA [Suspect]

REACTIONS (1)
  - ROAD TRAFFIC ACCIDENT [None]
